FAERS Safety Report 7965800-X (Version None)
Quarter: 2011Q4

REPORT INFORMATION
  Report Type: 
  Country: None (occurrence: None)
  Receive Date: 20111121
  Receipt Date: 20110830
  Transmission Date: 20120403
  Serious: No
  Sender: FDA-Public Use
  Company Number: 1000023272

PATIENT
  Age: 54 Year
  Sex: Male

DRUGS (11)
  1. CLONIDINE [Concomitant]
  2. CLONAZEPAM [Concomitant]
  3. VIIBRYD [Suspect]
     Indication: DEPRESSION
     Dosage: 10 MG (10 MG, 1 IN 1 D), ORAL
     Route: 048
     Dates: start: 20110825, end: 20110826
  4. NEURONTIN [Concomitant]
  5. CARBAMAZEPINE [Concomitant]
  6. METOPROLOL SUCCINATE [Concomitant]
  7. ROZEREM (RAMELTEON) (RAMELTEON) [Concomitant]
  8. SEROQUEL (QUETIAPINE FUMARATE) (QUETIAPINE FUMARATE) [Concomitant]
  9. BUSPAR (BUSPIRONE HYDROCHLORIDE) (BUSPIRONE HYDROCHLORIDE) [Concomitant]
  10. TRAZODONE (TRAZODONE) (TRAZODONE) [Concomitant]
  11. SYNTHROID (LEVOTHYROXINE SODIUM) (LEVOTHYROXINE SODIUM) [Concomitant]

REACTIONS (1)
  - AGITATION [None]
